FAERS Safety Report 25023061 (Version 1)
Quarter: 2025Q1

REPORT INFORMATION
  Report Type: Spontaneous
  Country: US (occurrence: US)
  Receive Date: 20250228
  Receipt Date: 20250228
  Transmission Date: 20250409
  Serious: No
  Sender: ELI LILLY AND COMPANY
  Company Number: US-ELI_LILLY_AND_COMPANY-US202502019779

PATIENT
  Sex: Female

DRUGS (8)
  1. ZEPBOUND [Suspect]
     Active Substance: TIRZEPATIDE
     Indication: Hyperthyroidism
     Route: 065
     Dates: start: 202411
  2. ZEPBOUND [Suspect]
     Active Substance: TIRZEPATIDE
     Indication: Hyperthyroidism
     Route: 065
     Dates: start: 202411
  3. ZEPBOUND [Suspect]
     Active Substance: TIRZEPATIDE
     Indication: Hyperthyroidism
     Route: 065
     Dates: start: 202411
  4. ZEPBOUND [Suspect]
     Active Substance: TIRZEPATIDE
     Indication: Hyperthyroidism
     Route: 065
     Dates: start: 202411
  5. ZEPBOUND [Suspect]
     Active Substance: TIRZEPATIDE
     Indication: Autoimmune thyroiditis
  6. ZEPBOUND [Suspect]
     Active Substance: TIRZEPATIDE
     Indication: Autoimmune thyroiditis
  7. ZEPBOUND [Suspect]
     Active Substance: TIRZEPATIDE
     Indication: Autoimmune thyroiditis
  8. ZEPBOUND [Suspect]
     Active Substance: TIRZEPATIDE
     Indication: Autoimmune thyroiditis

REACTIONS (2)
  - Off label use [Unknown]
  - Malaise [Unknown]
